FAERS Safety Report 15654985 (Version 2)
Quarter: 2018Q4

REPORT INFORMATION
  Report Type: Spontaneous
  Country: US (occurrence: US)
  Receive Date: 20181126
  Receipt Date: 20181226
  Transmission Date: 20190205
  Serious: Yes (Hospitalization, Other)
  Sender: FDA-Public Use
  Company Number: US-B.I. PHARMACEUTICALS,INC./RIDGEFIELD-2018-BI-056432

PATIENT
  Age: 53 Year
  Sex: Male
  Weight: 92.98 kg

DRUGS (2)
  1. JARDIANCE [Suspect]
     Active Substance: EMPAGLIFLOZIN
     Dosage: FORM STRENGTH: 10 MG; FORMULATION: TABLET?ACTION(S) TAKEN WITH PRODUCT: DRUG WITHDRAWN
     Route: 065
     Dates: start: 201806, end: 20180611
  2. JARDIANCE [Suspect]
     Active Substance: EMPAGLIFLOZIN
     Indication: LATENT AUTOIMMUNE DIABETES IN ADULTS
     Dosage: FORM STRENGTH: 10 MG; FORMULATION: TABLET?ACTION(S) TAKEN WITH PRODUCT: DRUG WITHDRAWN
     Route: 065
     Dates: start: 20180529

REACTIONS (5)
  - Neuropathy peripheral [Unknown]
  - Diabetic ketoacidosis [Recovered/Resolved with Sequelae]
  - Loss of consciousness [Recovered/Resolved]
  - Retinopathy [Unknown]
  - Macular oedema [Unknown]

NARRATIVE: CASE EVENT DATE: 20180611
